FAERS Safety Report 5476488-4 (Version None)
Quarter: 2007Q3

REPORT INFORMATION
  Report Type: 
  Country: None (occurrence: None)
  Receive Date: 20070904
  Receipt Date: 20070619
  Transmission Date: 20080115
  Serious: No
  Sender: FDA-Public Use
  Company Number: PHEH2007US08991

PATIENT
  Sex: Female

DRUGS (1)
  1. ENABLEX [Suspect]
     Indication: POLLAKIURIA
     Dosage: 7.5 MG, QD, ORAL;  7.5 MG EVERY OTHER DAY, ORAL
     Route: 048

REACTIONS (2)
  - DRY MOUTH [None]
  - NASAL DRYNESS [None]
